FAERS Safety Report 7950541-5 (Version None)
Quarter: 2011Q4

REPORT INFORMATION
  Report Type: 
  Country: None (occurrence: None)
  Receive Date: 20111130
  Receipt Date: 20111122
  Transmission Date: 20120403
  Serious: Yes (Other)
  Sender: FDA-Public Use
  Company Number: PHHY2011GB72721

PATIENT
  Age: 52 Year
  Sex: Male
  Weight: 80 kg

DRUGS (1)
  1. FLUCONAZOLE [Suspect]
     Indication: TINEA INFECTION
     Dosage: 200 MG, BID
     Dates: start: 20110701, end: 20110709

REACTIONS (3)
  - ECZEMA [None]
  - PHOTOSENSITIVITY REACTION [None]
  - SKIN IRRITATION [None]
